FAERS Safety Report 9959246 (Version 1)
Quarter: 2014Q1

REPORT INFORMATION
  Report Type: Spontaneous
  Country: US (occurrence: None)
  Receive Date: 20140227
  Receipt Date: 20140227
  Transmission Date: 20141002
  Serious: Yes (Other)
  Sender: FDA-Public Use
  Company Number: AUR-APL-2014-01915

PATIENT
  Age: 48 Year
  Sex: Male

DRUGS (8)
  1. PANTOPRAZOLE [Suspect]
     Indication: PRODUCT USED FOR UNKNOWN INDICATION
     Dates: start: 2012
  2. CARBOPLATIN (CARBOPLATIN) [Concomitant]
  3. IFOSFAMIDE (IFOSFAMIDE) [Concomitant]
  4. ETOPOSIDE (ETOPOSIDE) [Concomitant]
  5. CYCLOPHOSPHAMIDE (CYCLOPHOSPHAMIDE) [Concomitant]
  6. VINCRISTINE (VINCRISTINE) [Concomitant]
  7. PREDNISONE (PREDNISONE) [Concomitant]
  8. DOXORUBICIN (DOXORUBICIN) [Concomitant]

REACTIONS (4)
  - Tubulointerstitial nephritis [None]
  - Lymphocytic infiltration [None]
  - Acute prerenal failure [None]
  - Renal failure acute [None]
